FAERS Safety Report 21803455 (Version 1)
Quarter: 2023Q1

REPORT INFORMATION
  Report Type: Report from Study
  Country: BR (occurrence: BR)
  Receive Date: 20230101
  Receipt Date: 20230101
  Transmission Date: 20230418
  Serious: Yes (Other)
  Sender: FDA-Public Use
  Company Number: BR-CELLTRION INC.-2022BR021895

PATIENT

DRUGS (3)
  1. INFLIXIMAB [Suspect]
     Active Substance: INFLIXIMAB
     Indication: Crohn^s disease
     Dosage: 3 AMPOULES EVERY MONTHS
     Route: 042
     Dates: end: 20221216
  2. AZATHIOPRINE [Concomitant]
     Active Substance: AZATHIOPRINE
     Indication: Crohn^s disease
     Dosage: 2 PILL PER DAY (START: 1 YEAR AND 8 MONTHS AGO)
     Route: 048
  3. DIOSMIN [Concomitant]
     Active Substance: DIOSMIN
     Indication: Varicose vein
     Dosage: 2 PILL PER DAY (START: 1 YEAR AGO)
     Route: 048

REACTIONS (4)
  - Crohn^s disease [Recovering/Resolving]
  - Infection [Recovering/Resolving]
  - Intentional dose omission [Recovering/Resolving]
  - Off label use [Unknown]
